FAERS Safety Report 6787438-2 (Version None)
Quarter: 2010Q2

REPORT INFORMATION
  Report Type: 
  Country: None (occurrence: None)
  Receive Date: 20100623
  Receipt Date: 20070419
  Transmission Date: 20101027
  Serious: No
  Sender: FDA-Public Use
  Company Number: US-PFIZER INC-2006039261

PATIENT
  Age: 25 Year
  Sex: Female

DRUGS (3)
  1. DEPO-PROVERA SUSPENSION/INJ [Suspect]
     Indication: CONTRACEPTION
     Dosage: 1ST INJECTION, UNKNOWN
     Route: 030
     Dates: start: 20051201, end: 20051201
  2. DEPO-PROVERA SUSPENSION/INJ [Suspect]
     Dosage: MOST RECENT INJECTION
     Route: 058
     Dates: start: 20060314, end: 20060314
  3. IMITREX [Concomitant]
     Route: 065

REACTIONS (2)
  - INCORRECT ROUTE OF DRUG ADMINISTRATION [None]
  - WEIGHT INCREASED [None]
